FAERS Safety Report 9102576 (Version 1)
Quarter: 2013Q1

REPORT INFORMATION
  Report Type: Report from Study
  Country: GB (occurrence: GB)
  Receive Date: 20130218
  Receipt Date: 20130218
  Transmission Date: 20140127
  Serious: Yes (Hospitalization)
  Sender: FDA-Public Use
  Company Number: GB-ROCHE-1191265

PATIENT
  Sex: Female

DRUGS (2)
  1. TOCILIZUMAB [Suspect]
     Indication: RHEUMATOID ARTHRITIS
     Dosage: LAST DOSE OF TOCILIZUMAB ON 12/OCT/2012
     Route: 065
     Dates: start: 20120913
  2. STEROIDS - UNKNOWN TYPE [Concomitant]

REACTIONS (2)
  - Lower respiratory tract infection [Unknown]
  - Asthma [Unknown]
